FAERS Safety Report 5759783-0 (Version None)
Quarter: 2008Q2

REPORT INFORMATION
  Report Type: 
  Country: None (occurrence: None)
  Receive Date: 20080605
  Receipt Date: 20080529
  Transmission Date: 20081010
  Serious: Yes (Hospitalization)
  Sender: FDA-Public Use
  Company Number: B0522808A

PATIENT
  Age: 77 Year
  Sex: Female

DRUGS (9)
  1. ARIXTRA [Suspect]
     Indication: THROMBOSIS PROPHYLAXIS
     Dosage: 2.5MG PER DAY
     Route: 058
     Dates: start: 20080325, end: 20080412
  2. ASPIRIN [Suspect]
     Indication: DRUG USE FOR UNKNOWN INDICATION
     Dosage: 75MG PER DAY
     Route: 048
     Dates: end: 20080517
  3. SEROPLEX [Suspect]
     Indication: DRUG USE FOR UNKNOWN INDICATION
     Route: 048
  4. PROPYL-THIOURACIL [Concomitant]
     Route: 048
  5. NEXIUM [Concomitant]
     Route: 048
  6. ALPRAZOLAM [Concomitant]
     Route: 048
  7. TRIFLUCAN [Concomitant]
     Route: 048
  8. ALDALIX [Concomitant]
     Route: 065
  9. COZAAR [Concomitant]
     Route: 065

REACTIONS (6)
  - DRUG INTERACTION [None]
  - HAEMOGLOBIN DECREASED [None]
  - HERNIAL EVENTRATION [None]
  - SUBCUTANEOUS HAEMATOMA [None]
  - SUBILEUS [None]
  - THROMBOSIS [None]
